FAERS Safety Report 18247023 (Version 1)
Quarter: 2020Q3

REPORT INFORMATION
  Report Type: Spontaneous
  Country: US (occurrence: US)
  Receive Date: 20200909
  Receipt Date: 20200909
  Transmission Date: 20201103
  Serious: No
  Sender: FDA-Public Use
  Company Number: US-GLENMARK PHARMACEUTICALS-2020GMK048658

PATIENT

DRUGS (1)
  1. CLOTRIMAZOLE AND BETAMETHASONE DIPROPIONATE CREAM USP, 1%/0.05% (BASE) [Suspect]
     Active Substance: BETAMETHASONE DIPROPIONATE\CLOTRIMAZOLE
     Indication: RASH
     Dosage: UNK, TID (3 TIMES A DAY)
     Route: 065

REACTIONS (9)
  - Paraesthesia [Unknown]
  - Infection [Unknown]
  - Erythema [Unknown]
  - Adverse drug reaction [Unknown]
  - Swelling [Unknown]
  - Pruritus [Unknown]
  - Product use in unapproved indication [Unknown]
  - Burning sensation [Unknown]
  - Rash [Unknown]
